FAERS Safety Report 4284850-0 (Version None)
Quarter: 2004Q1

REPORT INFORMATION
  Report Type: 
  Country: None (occurrence: None)
  Receive Date: 20040203
  Receipt Date: 20040203
  Transmission Date: 20041129
  Serious: Yes (Hospitalization)
  Sender: FDA-Public Use
  Company Number: None

PATIENT
  Age: 68 Year
  Sex: Female
  Weight: 89.5 kg

DRUGS (4)
  1. TAMIFLU [Suspect]
     Indication: INFLUENZA LIKE ILLNESS
     Dosage: 75 MG PO BID
     Route: 048
     Dates: start: 20040109, end: 20040113
  2. ZOLOFT [Concomitant]
  3. ASPIRIN [Concomitant]
  4. THERAGRAN [Concomitant]

REACTIONS (5)
  - ARTHRALGIA [None]
  - DIFFICULTY IN WALKING [None]
  - ERYTHEMA MULTIFORME [None]
  - JOINT SWELLING [None]
  - PETECHIAE [None]
